FAERS Safety Report 13885300 (Version 2)
Quarter: 2017Q4

REPORT INFORMATION
  Report Type: Spontaneous
  Country: US (occurrence: US)
  Receive Date: 20170821
  Receipt Date: 20171123
  Transmission Date: 20180320
  Serious: No
  Sender: FDA-Public Use
  Company Number: US-009507513-1708USA003384

PATIENT

DRUGS (1)
  1. VYTORIN [Suspect]
     Active Substance: EZETIMIBE\SIMVASTATIN
     Indication: BLOOD CHOLESTEROL ABNORMAL
     Dosage: UNK
     Route: 048
     Dates: start: 2005

REACTIONS (1)
  - Therapeutic response unexpected [Unknown]
